FAERS Safety Report 13615815 (Version 1)
Quarter: 2017Q2

REPORT INFORMATION
  Report Type: Spontaneous
  Country: DE (occurrence: DE)
  Receive Date: 20170606
  Receipt Date: 20170606
  Transmission Date: 20170830
  Serious: Yes (Other)
  Sender: FDA-Public Use
  Company Number: DE-PFIZER INC-2017242959

PATIENT
  Age: 52 Year
  Sex: Female
  Weight: 78 kg

DRUGS (1)
  1. EXEMESTANE. [Suspect]
     Active Substance: EXEMESTANE
     Indication: BREAST CANCER
     Dosage: 25 MG, 1X/DAY (1-0-0)
     Route: 048
     Dates: start: 201703, end: 201704

REACTIONS (7)
  - Suicidal ideation [Unknown]
  - Memory impairment [Unknown]
  - Depression [Recovering/Resolving]
  - Apathy [Unknown]
  - Disturbance in attention [Unknown]
  - Decreased interest [Unknown]
  - Amnesia [Unknown]

NARRATIVE: CASE EVENT DATE: 20170424
